FAERS Safety Report 9380768 (Version 1)
Quarter: 2013Q3

REPORT INFORMATION
  Report Type: Report from Study
  Country: US (occurrence: US)
  Receive Date: 20130702
  Receipt Date: 20130702
  Transmission Date: 20140515
  Serious: Yes (Disabling, Other)
  Sender: FDA-Public Use
  Company Number: US-PFIZER INC-HQ2994509JUL2001

PATIENT
  Age: 64 Year
  Sex: Male

DRUGS (9)
  1. TEMSIROLIMUS [Suspect]
     Indication: RENAL CELL CARCINOMA
     Dosage: 75 MG, WEEKLY
     Route: 042
     Dates: start: 20001018, end: 20010404
  2. BENADRYL [Concomitant]
     Dosage: UNK
     Route: 048
     Dates: start: 20010124
  3. MARINOL [Concomitant]
     Dosage: UNK
     Route: 048
     Dates: start: 20001101, end: 20001121
  4. MARINOL [Concomitant]
     Dosage: UNK
     Route: 048
     Dates: start: 20001121
  5. ATARAX [Concomitant]
     Dosage: UNK
     Route: 048
     Dates: start: 20010131
  6. MOTRIN [Concomitant]
     Dosage: UNK
     Route: 065
  7. ATIVAN [Concomitant]
     Dosage: UNK
     Route: 048
     Dates: start: 20001017
  8. TYLENOL [Concomitant]
     Dosage: UNK
     Route: 048
     Dates: start: 20001017
  9. COMPAZINE [Concomitant]
     Dosage: UNK
     Route: 048
     Dates: start: 20001017

REACTIONS (2)
  - Pulmonary hypertension [Not Recovered/Not Resolved]
  - Pneumonitis [Not Recovered/Not Resolved]
